FAERS Safety Report 12262092 (Version 1)
Quarter: 2016Q2

REPORT INFORMATION
  Report Type: Spontaneous
  Country: US (occurrence: US)
  Receive Date: 20160413
  Receipt Date: 20160413
  Transmission Date: 20160815
  Serious: No
  Sender: FDA-Public Use
  Company Number: US-GLAXOSMITHKLINE-US2016046928

PATIENT
  Age: 66 Year
  Sex: Female

DRUGS (1)
  1. FLONASE [Suspect]
     Active Substance: FLUTICASONE PROPIONATE
     Indication: HYPERSENSITIVITY
     Dosage: 2 PUFF(S) (IN EACH NOSTRIL FOR TWO WEEKS), UNK
     Dates: start: 20160324

REACTIONS (4)
  - Drug ineffective [Unknown]
  - Lacrimation increased [Unknown]
  - Therapeutic response unexpected [Unknown]
  - Condition aggravated [Unknown]

NARRATIVE: CASE EVENT DATE: 20160324
